FAERS Safety Report 9760872 (Version 1)
Quarter: 2013Q4

REPORT INFORMATION
  Report Type: Spontaneous
  Country: US (occurrence: US)
  Receive Date: 20131216
  Receipt Date: 20131216
  Transmission Date: 20140711
  Serious: No
  Sender: FDA-Public Use
  Company Number: US-BIOGENIDEC-2013BI109797

PATIENT
  Age: 69 Year
  Sex: Female

DRUGS (14)
  1. TECFIDERA [Suspect]
     Indication: MULTIPLE SCLEROSIS
     Route: 048
     Dates: start: 20130723
  2. ALPRAZOLAM [Concomitant]
  3. AMITIZA [Concomitant]
  4. CYANOCOBALAMIN [Concomitant]
  5. CYMBALTA [Concomitant]
  6. CYMBALTA [Concomitant]
  7. FENTANYL [Concomitant]
  8. HYDROCODONE-ACETAMINOPHEN [Concomitant]
  9. MIRTAZAPINE [Concomitant]
  10. PANTOPRAZOLE SODIUM [Concomitant]
  11. PROPAFENONE HYDROCHLORIDE [Concomitant]
  12. MAGNESIUM [Concomitant]
  13. CALCIUM [Concomitant]
  14. TIZANIDINE HCL [Concomitant]

REACTIONS (1)
  - Muscle spasms [Unknown]
